FAERS Safety Report 8376705-7 (Version None)
Quarter: 2012Q2

REPORT INFORMATION
  Report Type: 
  Country: None (occurrence: None)
  Receive Date: 20120522
  Receipt Date: 20120510
  Transmission Date: 20120825
  Serious: No
  Sender: FDA-Public Use
  Company Number: US-ASTRAZENECA-2012SE30789

PATIENT
  Age: 52 Year
  Sex: Female

DRUGS (5)
  1. SEROQUEL [Suspect]
     Route: 048
  2. CLOZAPINE [Concomitant]
  3. DEPAKOTE [Concomitant]
  4. PROPRANOLOL [Concomitant]
  5. VITAMIN D [Concomitant]

REACTIONS (1)
  - LOCALISED OEDEMA [None]
